FAERS Safety Report 18568626 (Version 1)
Quarter: 2020Q4

REPORT INFORMATION
  Report Type: Spontaneous
  Country: FR (occurrence: FR)
  Receive Date: 20201202
  Receipt Date: 20201202
  Transmission Date: 20210114
  Serious: Yes (Other)
  Sender: FDA-Public Use
  Company Number: FR-AMGEN-FRANI2020191996

PATIENT
  Sex: Male
  Weight: 85 kg

DRUGS (10)
  1. HUMALOG [Concomitant]
     Active Substance: INSULIN LISPRO
     Dosage: UNK
  2. LASILIX [FUROSEMIDE] [Concomitant]
     Active Substance: FUROSEMIDE
     Dosage: UNK
  3. OMEPRAZOLE. [Concomitant]
     Active Substance: OMEPRAZOLE
     Dosage: UNK
  4. BACLOFENE [Concomitant]
     Active Substance: BACLOFEN
     Dosage: UNK
  5. LOVENOX [Suspect]
     Active Substance: ENOXAPARIN SODIUM
     Indication: ACUTE CORONARY SYNDROME
     Dosage: 8000 INTERNATIONAL UNIT
     Route: 065
  6. SERESTA [Concomitant]
     Active Substance: OXAZEPAM
     Dosage: UNK
  7. BEVACIZUMAB. [Suspect]
     Active Substance: BEVACIZUMAB
     Indication: HEPATOCELLULAR CARCINOMA
     Dosage: 1275 MILLIGRAM
     Route: 065
     Dates: start: 20200827, end: 20200827
  8. ABASAGLAR [Concomitant]
     Active Substance: INSULIN GLARGINE
     Dosage: UNK
  9. ATEZOLIZUMAB. [Suspect]
     Active Substance: ATEZOLIZUMAB
     Indication: HEPATOCELLULAR CARCINOMA
     Dosage: 1200 MILLIGRAM
     Route: 041
     Dates: start: 20200827, end: 20200827
  10. RAMIPRIL. [Concomitant]
     Active Substance: RAMIPRIL
     Dosage: UNK

REACTIONS (4)
  - Off label use [Unknown]
  - Varices oesophageal [Recovered/Resolved]
  - Acute coronary syndrome [Unknown]
  - Oesophageal haemorrhage [Recovered/Resolved]
